FAERS Safety Report 8303722-5 (Version None)
Quarter: 2012Q1

REPORT INFORMATION
  Report Type: 
  Country: None (occurrence: None)
  Receive Date: 20120326
  Receipt Date: 20111010
  Transmission Date: 20120608
  Serious: Yes (Hospitalization)
  Sender: FDA-Public Use
  Company Number: PHEH2011US04725

PATIENT
  Age: 63 Year
  Sex: Male

DRUGS (6)
  1. LISINOPRIL [Concomitant]
  2. ATORVASTATIN [Concomitant]
  3. JANUVIA (SITAGLIPTIN PHOPSHATE) [Concomitant]
  4. FAMOTIDINE [Concomitant]
  5. TASIGNA [Suspect]
     Indication: CHRONIC MYELOID LEUKAEMIA
  6. PLAVIX [Concomitant]

REACTIONS (1)
  - PANCREATITIS [None]
